FAERS Safety Report 7031071-4 (Version None)
Quarter: 2010Q4

REPORT INFORMATION
  Report Type: 
  Country: None (occurrence: None)
  Receive Date: 20101006
  Receipt Date: 20100926
  Transmission Date: 20110411
  Serious: Yes (Other)
  Sender: FDA-Public Use
  Company Number: DE-BAUSCH-2010BL005572

PATIENT
  Age: 23 Year
  Sex: Female
  Weight: 77 kg

DRUGS (3)
  1. NAPHAZOLINE HCL [Suspect]
     Indication: HYPOPHYSECTOMY
     Route: 045
  2. PROPOFOL [Concomitant]
  3. REMIFENTANIL [Concomitant]

REACTIONS (2)
  - PULMONARY OEDEMA [None]
  - SOMNOLENCE [None]
